FAERS Safety Report 5944997-7 (Version None)
Quarter: 2008Q4

REPORT INFORMATION
  Report Type: 
  Country: None (occurrence: None)
  Receive Date: 20081107
  Receipt Date: 20080104
  Transmission Date: 20090506
  Serious: Yes (Other)
  Sender: FDA-Public Use
  Company Number: US-MERCK-0705USA02818

PATIENT
  Age: 79 Year
  Sex: Female

DRUGS (2)
  1. FOSAMAX [Suspect]
     Indication: OSTEOPOROSIS
     Route: 048
     Dates: start: 19980912
  2. FOSAMAX [Suspect]
     Route: 048
     Dates: end: 20060220

REACTIONS (9)
  - ANXIETY [None]
  - CEREBRAL ARTERY STENOSIS [None]
  - CEREBRAL ISCHAEMIA [None]
  - DEPRESSION [None]
  - ORAL INFECTION [None]
  - OSTEONECROSIS [None]
  - PANCYTOPENIA [None]
  - TOOTH FRACTURE [None]
  - TOOTH LOSS [None]
